FAERS Safety Report 8401621 (Version 3)
Quarter: 2014Q2

REPORT INFORMATION
  Report Type: Spontaneous
  Country: BR (occurrence: BR)
  Receive Date: 20120210
  Receipt Date: 20131114
  Transmission Date: 20141212
  Serious: Yes (Hospitalization)
  Sender: FDA-Public Use
  Company Number: BR-ASTRAZENECA-2012SE07651

PATIENT
  Age: 83 Year
  Sex: Female
  Weight: 56 kg

DRUGS (6)
  1. ATENOLOL [Suspect]
     Indication: HYPERTENSION
     Route: 048
  2. ATACAND HCT [Suspect]
     Indication: HYPERTENSION
     Dosage: 8/ 12.5 MG, ONCE DAILY
     Route: 048
  3. ALOIS [Concomitant]
     Indication: EFFUSION
     Route: 048
  4. NATURETTI [Concomitant]
     Indication: CONSTIPATION
     Route: 048
  5. LORAX [Concomitant]
     Indication: INSOMNIA
     Route: 048
  6. LESCOL [Concomitant]
     Indication: HYPERCHOLESTEROLAEMIA

REACTIONS (4)
  - Myocardial infarction [Recovered/Resolved]
  - Helicobacter infection [Not Recovered/Not Resolved]
  - Gastritis [Not Recovered/Not Resolved]
  - Hiatus hernia [Not Recovered/Not Resolved]
